FAERS Safety Report 5402697-6 (Version None)
Quarter: 2007Q3

REPORT INFORMATION
  Report Type: 
  Country: None (occurrence: None)
  Receive Date: 20070801
  Receipt Date: 20070727
  Transmission Date: 20080115
  Serious: Yes (Other)
  Sender: FDA-Public Use
  Company Number: B0480172A

PATIENT
  Age: 69 Year
  Sex: Male
  Weight: 73 kg

DRUGS (3)
  1. FOSAMPRENAVIR [Suspect]
     Indication: HIV INFECTION
     Dosage: 700MG TWICE PER DAY
     Route: 048
     Dates: start: 20070605, end: 20070706
  2. RITONAVIR [Suspect]
     Indication: HIV INFECTION
     Dosage: 100MG TWICE PER DAY
     Route: 048
     Dates: start: 20070605, end: 20070706
  3. KIVEXA [Suspect]
     Indication: HIV INFECTION
     Route: 048
     Dates: start: 20070605, end: 20070706

REACTIONS (1)
  - HEPATITIS ACUTE [None]
